FAERS Safety Report 5592537-7 (Version None)
Quarter: 2008Q1

REPORT INFORMATION
  Report Type: 
  Country: None (occurrence: None)
  Receive Date: 20080111
  Receipt Date: 20071226
  Transmission Date: 20080703
  Serious: Yes (Hospitalization)
  Sender: FDA-Public Use
  Company Number: 430006N07FRA

PATIENT
  Age: 21 Year
  Sex: Male

DRUGS (30)
  1. NOVANTRONE [Suspect]
     Indication: ACUTE MYELOID LEUKAEMIA
     Dosage: 21 MG, 1 IN 1 DAYS, INTRAVENOUS (NOT OTHEWISE SPECIFIED)
     Route: 042
     Dates: start: 20071123, end: 20071125
  2. NOVANTRONE [Suspect]
     Indication: BONE PAIN
     Dosage: 21 MG, 1 IN 1 DAYS, INTRAVENOUS (NOT OTHEWISE SPECIFIED)
     Route: 042
     Dates: start: 20071123, end: 20071125
  3. NOVANTRONE [Suspect]
     Indication: LEUKAEMIA RECURRENT
     Dosage: 21 MG, 1 IN 1 DAYS, INTRAVENOUS (NOT OTHEWISE SPECIFIED)
     Route: 042
     Dates: start: 20071123, end: 20071125
  4. GEMTUZUMAB (GEMTUZUMAB) [Suspect]
     Indication: ACUTE MYELOID LEUKAEMIA
     Dosage: SEE IMAGE
     Route: 042
     Dates: start: 20071123, end: 20071125
  5. GEMTUZUMAB (GEMTUZUMAB) [Suspect]
     Indication: BONE PAIN
     Dosage: SEE IMAGE
     Route: 042
     Dates: start: 20071123, end: 20071125
  6. GEMTUZUMAB (GEMTUZUMAB) [Suspect]
     Indication: LEUKAEMIA RECURRENT
     Dosage: SEE IMAGE
     Route: 042
     Dates: start: 20071123, end: 20071125
  7. GEMTUZUMAB (GEMTUZUMAB) [Suspect]
     Indication: ACUTE MYELOID LEUKAEMIA
     Dosage: SEE IMAGE
     Route: 042
     Dates: start: 20071126, end: 20071126
  8. GEMTUZUMAB (GEMTUZUMAB) [Suspect]
     Indication: BONE PAIN
     Dosage: SEE IMAGE
     Route: 042
     Dates: start: 20071126, end: 20071126
  9. GEMTUZUMAB (GEMTUZUMAB) [Suspect]
     Indication: LEUKAEMIA RECURRENT
     Dosage: SEE IMAGE
     Route: 042
     Dates: start: 20071126, end: 20071126
  10. GEMTUZUMAB (GEMTUZUMAB) [Suspect]
     Indication: ACUTE MYELOID LEUKAEMIA
     Dosage: SEE IMAGE
     Route: 042
     Dates: start: 20071129, end: 20071129
  11. GEMTUZUMAB (GEMTUZUMAB) [Suspect]
     Indication: BONE PAIN
     Dosage: SEE IMAGE
     Route: 042
     Dates: start: 20071129, end: 20071129
  12. GEMTUZUMAB (GEMTUZUMAB) [Suspect]
     Indication: LEUKAEMIA RECURRENT
     Dosage: SEE IMAGE
     Route: 042
     Dates: start: 20071129, end: 20071129
  13. CYTARABINE [Suspect]
     Indication: ACUTE MYELOID LEUKAEMIA
     Dosage: 1.8 G, 2 IN 1 DAYS, INTRAVENOUS (NOT OTHERWISE SPECIFIED)
     Route: 042
     Dates: start: 20071123, end: 20071127
  14. CYTARABINE [Suspect]
     Indication: BONE PAIN
     Dosage: 1.8 G, 2 IN 1 DAYS, INTRAVENOUS (NOT OTHERWISE SPECIFIED)
     Route: 042
     Dates: start: 20071123, end: 20071127
  15. CYTARABINE [Suspect]
     Indication: LEUKAEMIA RECURRENT
     Dosage: 1.8 G, 2 IN 1 DAYS, INTRAVENOUS (NOT OTHERWISE SPECIFIED)
     Route: 042
     Dates: start: 20071123, end: 20071127
  16. CIPROFLOXACIN [Suspect]
     Indication: ACUTE MYELOID LEUKAEMIA
     Dosage: 500 MG, 2 IN 1 DAYS, INTRAVNEOUS (NOT OTHERWISE SPECIFIED)
     Route: 042
     Dates: end: 20071125
  17. CEFTAZIDIME PENTAHYDRATE [Suspect]
     Dosage: INTRAVENOUS (NOT OTHWERWISE SPECIFIED)
     Route: 042
     Dates: start: 20071123
  18. PANTOPRAZOLE SODIUM [Suspect]
     Dosage: ORAL
     Route: 048
     Dates: end: 20071130
  19. RASBURICASE (RASBURICASE) [Suspect]
     Dosage: INTRAVENOUS (NOT OTHERWISE SPECIFIED)
     Route: 042
     Dates: start: 20071121, end: 20071124
  20. ONDANSETRON HCL [Suspect]
     Dosage: ORAL
     Route: 048
     Dates: start: 20071123, end: 20071128
  21. BROMAZEPAM [Concomitant]
  22. ACETAMINOPHEN [Concomitant]
  23. MORPHINE /00036301/) [Concomitant]
  24. NEFOPAM HYDROCHLORIDE [Concomitant]
  25. PIPERACILLIN AND TAZOBACTAM [Concomitant]
  26. AMIKACIN /00391001/ [Concomitant]
  27. ZOLPIDEM /00914901/ [Concomitant]
  28. FLUCONAZOLE [Concomitant]
  29. TETRAZEPAM [Concomitant]
  30. METHYLPREDNISOLONE SODIUM SUCCINAGE [Concomitant]

REACTIONS (2)
  - CHOLESTASIS [None]
  - PANCREATITIS ACUTE [None]
